FAERS Safety Report 21572902 (Version 1)
Quarter: 2022Q4

REPORT INFORMATION
  Report Type: Spontaneous
  Country: US (occurrence: US)
  Receive Date: 20221109
  Receipt Date: 20221109
  Transmission Date: 20230113
  Serious: Yes (Death, Other)
  Sender: FDA-Public Use
  Company Number: US-BAYER-2022A152557

PATIENT
  Age: 79 Year
  Sex: Male

DRUGS (2)
  1. ASPIRIN [Suspect]
     Active Substance: ASPIRIN
  2. PRASUGREL [Suspect]
     Active Substance: PRASUGREL

REACTIONS (6)
  - Oesophageal haemorrhage [Fatal]
  - Haematemesis [None]
  - Chest pain [None]
  - Acute respiratory failure [None]
  - Multiple organ dysfunction syndrome [None]
  - Labelled drug-drug interaction medication error [None]
